FAERS Safety Report 9254217 (Version 1)
Quarter: 2013Q2

REPORT INFORMATION
  Report Type: Report from Study
  Country: GB (occurrence: GB)
  Receive Date: 20130425
  Receipt Date: 20130425
  Transmission Date: 20140414
  Serious: Yes (Other)
  Sender: FDA-Public Use
  Company Number: PHHO2012GB007218

PATIENT
  Age: 82 Year
  Sex: Male
  Weight: 94 kg

DRUGS (4)
  1. ZOLEDRONATE [Suspect]
     Indication: PROSTATE CANCER
     Dosage: 4 MG, UNK
     Dates: start: 20110602, end: 20120426
  2. ZOLEDRONATE [Suspect]
     Dosage: 3.5 MG, UNK
     Dates: start: 20120524, end: 20120920
  3. PERINDOPRIL [Concomitant]
     Indication: HYPERTENSION
     Dosage: 8 MG, QD
  4. ZOLADEX [Concomitant]
     Dosage: 10.8 MG, UNK
     Dates: start: 201105

REACTIONS (3)
  - Atrial fibrillation [Unknown]
  - Transient ischaemic attack [Recovered/Resolved]
  - Glomerular filtration rate decreased [Not Recovered/Not Resolved]
